FAERS Safety Report 6653887-6 (Version None)
Quarter: 2010Q1

REPORT INFORMATION
  Report Type: 
  Country: None (occurrence: None)
  Receive Date: 20100326
  Receipt Date: 20100313
  Transmission Date: 20100710
  Serious: Yes (Other)
  Sender: FDA-Public Use
  Company Number: US-JNJFOC-20090801181

PATIENT
  Age: 6 Decade
  Sex: Male

DRUGS (2)
  1. LEVAQUIN [Suspect]
     Indication: HAEMOTHORAX
     Route: 048
  2. LEVAQUIN [Suspect]
     Indication: BRONCHITIS
     Route: 048

REACTIONS (2)
  - HAEMOTHORAX [None]
  - RIB FRACTURE [None]
